FAERS Safety Report 21995282 (Version 3)
Quarter: 2023Q1

REPORT INFORMATION
  Report Type: Report from Study
  Country: US (occurrence: US)
  Receive Date: 20230215
  Receipt Date: 20230228
  Transmission Date: 20230417
  Serious: Yes (Other)
  Sender: FDA-Public Use
  Company Number: US-ABBVIE-4308484

PATIENT
  Age: 62 Year
  Sex: Female
  Weight: 55.338 kg

DRUGS (3)
  1. SKYRIZI [Suspect]
     Active Substance: RISANKIZUMAB-RZAA
     Indication: Psoriasis
     Route: 058
     Dates: start: 20220713
  2. SKYRIZI [Suspect]
     Active Substance: RISANKIZUMAB-RZAA
     Indication: Uveitis
  3. PREDNISONE [Concomitant]
     Active Substance: PREDNISONE
     Indication: Uveitis

REACTIONS (6)
  - Pulmonary fibrosis [Not Recovered/Not Resolved]
  - Off label use [Not Recovered/Not Resolved]
  - Oral herpes [Recovered/Resolved]
  - Lung diffusion test decreased [Not Recovered/Not Resolved]
  - Nasal mucosal blistering [Recovered/Resolved]
  - Chest discomfort [Recovered/Resolved]

NARRATIVE: CASE EVENT DATE: 20221201
